FAERS Safety Report 12419716 (Version 3)
Quarter: 2016Q3

REPORT INFORMATION
  Report Type: Spontaneous
  Country: JP (occurrence: JP)
  Receive Date: 20160531
  Receipt Date: 20160906
  Transmission Date: 20161109
  Serious: Yes (Other)
  Sender: FDA-Public Use
  Company Number: JP-GLAXOSMITHKLINE-JP2016JPN073500

PATIENT
  Age: 70 Year
  Sex: Female

DRUGS (12)
  1. LAMICTAL [Suspect]
     Active Substance: LAMOTRIGINE
     Indication: GENERALISED TONIC-CLONIC SEIZURE
     Dosage: 25 MG, QOD
     Route: 048
     Dates: start: 20150714, end: 20150727
  2. LAMICTAL [Suspect]
     Active Substance: LAMOTRIGINE
     Dosage: 25 MG, QD
     Route: 048
     Dates: start: 20150728, end: 20150810
  3. LAMICTAL [Suspect]
     Active Substance: LAMOTRIGINE
     Dosage: 75 MG, QD
     Route: 048
     Dates: start: 20150825, end: 20150907
  4. LAMICTAL [Suspect]
     Active Substance: LAMOTRIGINE
     Dosage: 100 MG, QD
     Route: 048
     Dates: start: 20150908
  5. JZOLOFT [Concomitant]
     Active Substance: SERTRALINE HYDROCHLORIDE
     Dosage: UNK
  6. MOSAPRIDE CITRATE HYDRATE [Concomitant]
     Active Substance: MOSAPRIDE CITRATE DIHYDRATE
     Dosage: UNK
  7. UNKNOWN DRUG [Concomitant]
     Active Substance: UNSPECIFIED INGREDIENT
     Dosage: UNK
  8. MELOXICAM. [Concomitant]
     Active Substance: MELOXICAM
     Dosage: UNK
  9. KOLANTYL [Concomitant]
     Active Substance: DICYCLOMINE HYDROCHLORIDE
     Dosage: UNK
  10. LAMICTAL [Suspect]
     Active Substance: LAMOTRIGINE
     Dosage: 50 MG, QD
     Route: 048
     Dates: start: 20150811, end: 20150824
  11. MEDROL [Concomitant]
     Active Substance: METHYLPREDNISOLONE
     Dosage: UNK
  12. BROTIZOLAM [Concomitant]
     Active Substance: BROTIZOLAM
     Dosage: UNK

REACTIONS (3)
  - Femoral neck fracture [Not Recovered/Not Resolved]
  - Fall [Not Recovered/Not Resolved]
  - Gait disturbance [Unknown]

NARRATIVE: CASE EVENT DATE: 20160519
